FAERS Safety Report 6596068-7 (Version None)
Quarter: 2010Q1

REPORT INFORMATION
  Report Type: 
  Country: None (occurrence: None)
  Receive Date: 20100219
  Receipt Date: 20100219
  Transmission Date: 20100710
  Serious: Yes (Hospitalization)
  Sender: FDA-Public Use
  Company Number: None

PATIENT
  Age: 81 Year
  Sex: Male
  Weight: 73.7 kg

DRUGS (1)
  1. WARFARIN SODIUM [Suspect]
     Indication: ATRIAL FIBRILLATION
     Dosage: 5 MG AT BEDTIME PO
     Route: 048
     Dates: start: 20081029, end: 20091002

REACTIONS (4)
  - ANAL FISSURE [None]
  - CONJUNCTIVAL HAEMORRHAGE [None]
  - GASTRIC CANCER [None]
  - INTERNATIONAL NORMALISED RATIO INCREASED [None]
